FAERS Safety Report 5794633-8 (Version None)
Quarter: 2008Q2

REPORT INFORMATION
  Report Type: 
  Country: None (occurrence: None)
  Receive Date: 20080627
  Receipt Date: 20080627
  Transmission Date: 20081010
  Serious: Yes (Hospitalization)
  Sender: FDA-Public Use
  Company Number: None

PATIENT
  Sex: Male
  Weight: 99.7913 kg

DRUGS (11)
  1. CARVEDIOLOL [Suspect]
     Indication: HYPERTENSION
     Dosage: 25 MG PO BID  PRIOR TO ADMISSION
     Route: 048
  2. LASIX [Suspect]
     Indication: HYPERTENSION
     Dosage: 40 MG PO QD  PRIOR TO ADMISSION
     Route: 048
  3. SPIRONOLACTONE 25MG TAB [Suspect]
     Indication: HYPERTENSION
     Dosage: 25 MG PO QD  PRIOR TO ADMISSION
     Route: 048
  4. ALLOPURINOL [Concomitant]
  5. AMIODARONE HCL [Concomitant]
  6. COLCHICINE [Concomitant]
  7. FUROSEMIDE [Concomitant]
  8. LEVOTHYROXINE SODIUM [Concomitant]
  9. ZOCOR [Concomitant]
  10. TERAZOSIN HCL [Concomitant]
  11. WARFARIN SODIUM [Concomitant]

REACTIONS (3)
  - DIZZINESS [None]
  - HYPOTENSION [None]
  - PRESYNCOPE [None]
